FAERS Safety Report 8976112 (Version 1)
Quarter: 2012Q4

REPORT INFORMATION
  Report Type: 
  Country: US (occurrence: US)
  Receive Date: 20121219
  Receipt Date: 20121219
  Transmission Date: 20130627
  Serious: No
  Sender: FDA-Public Use
  Company Number: US-AMGEN-USASP2012066582

PATIENT
  Sex: Female

DRUGS (2)
  1. PROLIA [Suspect]
     Indication: OSTEOPOROSIS POSTMENOPAUSAL
     Dosage: 60 mg, q6mo
     Route: 030
     Dates: start: 20111019
  2. PROLIA [Suspect]
     Dosage: 60 mg, q6mo
     Route: 058

REACTIONS (3)
  - Bone density decreased [Unknown]
  - Coeliac disease [Unknown]
  - Incorrect route of drug administration [Unknown]
